FAERS Safety Report 8200425-2 (Version None)
Quarter: 2012Q1

REPORT INFORMATION
  Report Type: 
  Country: None (occurrence: None)
  Receive Date: 20120309
  Receipt Date: 20120309
  Transmission Date: 20120608
  Serious: Yes (Hospitalization)
  Sender: FDA-Public Use
  Company Number: None

PATIENT
  Age: 55 Year
  Sex: Male
  Weight: 119.5 kg

DRUGS (1)
  1. GLIPIZIDE [Suspect]
     Indication: DIABETES MELLITUS
     Dosage: MG PO
     Route: 048
     Dates: start: 20100824, end: 20120214

REACTIONS (6)
  - GASTROENTERITIS VIRAL [None]
  - DIARRHOEA [None]
  - HYPOGLYCAEMIA [None]
  - HYPOPHAGIA [None]
  - HEADACHE [None]
  - DIZZINESS [None]
